FAERS Safety Report 5869537-2 (Version None)
Quarter: 2008Q3

REPORT INFORMATION
  Report Type: 
  Country: None (occurrence: None)
  Receive Date: 20080904
  Receipt Date: 20080205
  Transmission Date: 20090109
  Serious: Yes (Hospitalization, Other)
  Sender: FDA-Public Use
  Company Number: CA-JNJFOC-20080107593

PATIENT
  Sex: Male
  Weight: 68.04 kg

DRUGS (8)
  1. RISPERDAL [Suspect]
     Indication: SCHIZOAFFECTIVE DISORDER
     Route: 048
  2. RISPERDAL CONSTA [Suspect]
     Route: 050
  3. RISPERDAL CONSTA [Suspect]
     Indication: SCHIZOAFFECTIVE DISORDER
     Route: 050
  4. VALPORIC ACID [Concomitant]
     Indication: CONVULSION
  5. NIACIN [Concomitant]
  6. VITAMIN B COMPLEX CAP [Concomitant]
  7. ASCORBIC ACID [Concomitant]
  8. OLANZAPINE [Concomitant]

REACTIONS (44)
  - AGRAPHIA [None]
  - ATROPHY [None]
  - BACK DISORDER [None]
  - BRAIN INJURY [None]
  - CONSTIPATION [None]
  - DIARRHOEA [None]
  - DISCOMFORT [None]
  - DYSGEUSIA [None]
  - DYSPEPSIA [None]
  - ECZEMA [None]
  - ERECTILE DYSFUNCTION [None]
  - GAIT DISTURBANCE [None]
  - GASTROOESOPHAGEAL REFLUX DISEASE [None]
  - HAIR GROWTH ABNORMAL [None]
  - HALLUCINATION [None]
  - HEADACHE [None]
  - INCONTINENCE [None]
  - INSOMNIA [None]
  - LIBIDO DECREASED [None]
  - LIP EXFOLIATION [None]
  - LIVER FUNCTION TEST ABNORMAL [None]
  - LOSS OF CONSCIOUSNESS [None]
  - MUSCLE SPASMS [None]
  - NEUROLEPTIC MALIGNANT SYNDROME [None]
  - NIPPLE PAIN [None]
  - OEDEMA [None]
  - OEDEMA PERIPHERAL [None]
  - PAIN [None]
  - RENAL PAIN [None]
  - RESPIRATORY DISORDER [None]
  - RHINORRHOEA [None]
  - SKIN INJURY [None]
  - STRESS [None]
  - SUICIDE ATTEMPT [None]
  - TARDIVE DYSKINESIA [None]
  - THINKING ABNORMAL [None]
  - TINNITUS [None]
  - TONGUE COATED [None]
  - TREMOR [None]
  - URINARY TRACT DISORDER [None]
  - VARICOSE VEIN [None]
  - VISION BLURRED [None]
  - VISUAL IMPAIRMENT [None]
  - WEIGHT INCREASED [None]
